FAERS Safety Report 13709734 (Version 5)
Quarter: 2017Q3

REPORT INFORMATION
  Report Type: Report from Study
  Country: None (occurrence: AT)
  Receive Date: 20170703
  Receipt Date: 20170719
  Transmission Date: 20171127
  Serious: Yes (Hospitalization)
  Sender: FDA-Public Use
  Company Number: AT-ABBVIE-17P-009-2021560-00

PATIENT
  Age: 78 Year
  Sex: Male

DRUGS (3)
  1. DUODOPA [Suspect]
     Active Substance: CARBIDOPA\LEVODOPA
     Dosage: 24H THERAPY:?CR DAYTIME 1: 4.1ML/H, CR DAYTIME 2: 4.3 ML/H, ED: 2.5ML
     Route: 050
  2. DUODOPA [Suspect]
     Active Substance: CARBIDOPA\LEVODOPA
     Dosage: 4.1ML/H FROM 06AM TO 2 P.M.?4.6ML/H: FROM 2P.M. TO 10 P.M.?3.3ML/H FROM 10 P.M. TO 06 A.M.
     Route: 050
  3. DUODOPA [Suspect]
     Active Substance: CARBIDOPA\LEVODOPA
     Indication: PARKINSON^S DISEASE
     Dosage: MD 3.5 ML?KR DAY 4.2 ML/ H - 4.3 ML/H?KR NIGHT 3.3 ML/H?ED 2 ML
     Route: 050
     Dates: start: 20141120

REACTIONS (5)
  - Stoma site inflammation [Recovering/Resolving]
  - Pneumonia aspiration [Recovering/Resolving]
  - Inflammatory marker increased [Not Recovered/Not Resolved]
  - Peritonitis [Not Recovered/Not Resolved]
  - Embedded device [Recovering/Resolving]

NARRATIVE: CASE EVENT DATE: 20170623
